FAERS Safety Report 9962099 (Version 1)
Quarter: 2014Q1

REPORT INFORMATION
  Report Type: Report from Study
  Country: US (occurrence: US)
  Receive Date: 20140305
  Receipt Date: 20140305
  Transmission Date: 20141002
  Serious: No
  Sender: FDA-Public Use
  Company Number: US-ABBVIE-13P-163-1115752-00

PATIENT
  Age: 81 Year
  Sex: Female

DRUGS (7)
  1. HUMIRA [Suspect]
     Indication: PSORIATIC ARTHROPATHY
     Route: 058
     Dates: start: 201108, end: 201208
  2. HUMIRA [Suspect]
     Route: 058
     Dates: start: 20130625, end: 20130625
  3. HUMIRA [Suspect]
     Route: 058
  4. NEURONTIN [Concomitant]
     Indication: BACK PAIN
     Dosage: AT BEDTIME
  5. BENADRYL [Concomitant]
     Indication: SEASONAL ALLERGY
  6. IBUPROFEN [Concomitant]
     Indication: PSORIATIC ARTHROPATHY
  7. GABAPENTIN [Concomitant]

REACTIONS (4)
  - Wrong technique in drug usage process [Unknown]
  - Injury associated with device [Unknown]
  - Cystitis [Not Recovered/Not Resolved]
  - Injection site pain [Not Recovered/Not Resolved]
